FAERS Safety Report 9010036 (Version 6)
Quarter: 2014Q3

REPORT INFORMATION
  Report Type: Spontaneous
  Country: US (occurrence: US)
  Receive Date: 20130110
  Receipt Date: 20140707
  Transmission Date: 20150326
  Serious: Yes (Hospitalization, Disabling, Other)
  Sender: FDA-Public Use
  Company Number: US-MERCK-1301USA000443

PATIENT
  Sex: Female

DRUGS (5)
  1. CALTRATE (CALCIUM CARBONATE (+) CHOLECALCIFEROL) [Concomitant]
     Dosage: UNK
     Dates: start: 1990
  2. EVISTA [Concomitant]
     Active Substance: RALOXIFENE HYDROCHLORIDE
     Indication: OSTEOPOROSIS
     Dosage: 60 MG, QD
     Dates: start: 200106, end: 200406
  3. FOSAMAX [Suspect]
     Active Substance: ALENDRONATE SODIUM
     Indication: OSTEOPOROSIS
     Dosage: 70 MG, QW
     Route: 048
     Dates: start: 200105, end: 200406
  4. VITAMINS (UNSPECIFIED) [Concomitant]
     Active Substance: VITAMINS
     Dosage: UNK
     Dates: start: 1989, end: 2011
  5. VITAMIN D [Concomitant]
     Active Substance: CHOLECALCIFEROL
     Dosage: UNK DOSE QD-50000 IU QW
     Dates: start: 2001

REACTIONS (43)
  - Femur fracture [Recovered/Resolved]
  - Inflammation [Unknown]
  - Haemorrhagic anaemia [Recovering/Resolving]
  - Pathogen resistance [Unknown]
  - Urinary tract infection [Unknown]
  - Asthenia [Unknown]
  - Hypertension [Unknown]
  - Tonsillectomy [Unknown]
  - Muscle spasms [Unknown]
  - Drug ineffective [Unknown]
  - Hypocalcaemia [Unknown]
  - Diarrhoea [Recovered/Resolved]
  - Femur fracture [Not Recovered/Not Resolved]
  - Thyroidectomy [Unknown]
  - Low turnover osteopathy [Not Recovered/Not Resolved]
  - Stress fracture [Not Recovered/Not Resolved]
  - Appendicectomy [Unknown]
  - Drug ineffective [Unknown]
  - Hypocalcaemia [Unknown]
  - Spinal osteoarthritis [Unknown]
  - Anxiety [Unknown]
  - Back pain [Recovering/Resolving]
  - Constipation [Unknown]
  - Joint swelling [Unknown]
  - Joint arthroplasty [Unknown]
  - Spinal laminectomy [Unknown]
  - Pain [Unknown]
  - Joint contracture [Unknown]
  - Anaemia [Recovering/Resolving]
  - Open reduction of fracture [Unknown]
  - Urinary incontinence [Recovered/Resolved]
  - Depression [Recovering/Resolving]
  - Dyspepsia [Unknown]
  - Hip arthroplasty [Unknown]
  - Hypertonic bladder [Unknown]
  - Diastasis recti abdominis [Unknown]
  - Hypoalbuminaemia [Unknown]
  - Nail operation [Unknown]
  - Osteoarthritis [Unknown]
  - Gallbladder disorder [Unknown]
  - Cholecystectomy [Unknown]
  - Osteoporosis [Not Recovered/Not Resolved]
  - Urinary tract infection bacterial [Recovering/Resolving]

NARRATIVE: CASE EVENT DATE: 200109
